FAERS Safety Report 12862586 (Version 5)
Quarter: 2017Q1

REPORT INFORMATION
  Report Type: Report from Study
  Country: IT (occurrence: IT)
  Receive Date: 20161019
  Receipt Date: 20170210
  Transmission Date: 20170428
  Serious: Yes (Other)
  Sender: FDA-Public Use
  Company Number: IT-OTSUKA-2016_022804

PATIENT
  Age: 45 Year
  Sex: Female
  Weight: 51 kg

DRUGS (28)
  1. BLINDED *PLACEBO [Suspect]
     Active Substance: INVESTIGATIONAL PRODUCT
     Dosage: PLACEBO RUN IN (1 TABLET IN EVENING)
     Route: 048
     Dates: start: 20160119, end: 20160202
  2. BLINDED *PLACEBO [Suspect]
     Active Substance: INVESTIGATIONAL PRODUCT
     Dosage: 45 MG, QD (3 TABS OF 15 MG IN MORNING)
     Route: 048
     Dates: start: 20160207, end: 20160209
  3. BLINDED TOLVAPTAN [Suspect]
     Active Substance: TOLVAPTAN
     Dosage: 45 MG, QD (3 TABS OF 15 MG IN MORNING)
     Route: 048
     Dates: start: 20160207, end: 20160209
  4. BLINDED *PLACEBO [Suspect]
     Active Substance: INVESTIGATIONAL PRODUCT
     Indication: CONGENITAL CYSTIC KIDNEY DISEASE
     Dosage: 45 MG, QD (3 TABS OF 15 MG IN MORNING)
     Route: 048
     Dates: start: 20160406, end: 20160729
  5. BLINDED *PLACEBO [Suspect]
     Active Substance: INVESTIGATIONAL PRODUCT
     Dosage: 30 MG, QD (1 TAB OF 30 MG IN EVENING)
     Route: 048
     Dates: start: 20160214, end: 20160216
  6. BLINDED TOLVAPTAN [Suspect]
     Active Substance: TOLVAPTAN
     Indication: CONGENITAL CYSTIC KIDNEY DISEASE
     Dosage: 45 MG, QD (3 TABS OF 15 MG IN MORNING)
     Route: 048
     Dates: start: 20160406, end: 20160729
  7. BLINDED TOLVAPTAN [Suspect]
     Active Substance: TOLVAPTAN
     Dosage: 15 MG, QD (1 TAB OF 15 MG IN EVENING)
     Route: 048
     Dates: start: 20160406, end: 20160729
  8. BLINDED *PLACEBO [Suspect]
     Active Substance: INVESTIGATIONAL PRODUCT
     Dosage: PLACEBO RUN IN (1 TABLET IN MORNING)
     Route: 048
     Dates: start: 20160119, end: 20160202
  9. BLINDED TOLVAPTAN [Suspect]
     Active Substance: TOLVAPTAN
     Dosage: 30 MG, QD (2 TABS OF 15 MG IN MORNING)
     Route: 048
     Dates: start: 20160203, end: 20160206
  10. BLINDED *PLACEBO [Suspect]
     Active Substance: INVESTIGATIONAL PRODUCT
     Dosage: 60 MG, QD (2 TABS OF 30 MG IN MORNING)
     Route: 048
     Dates: start: 20160210, end: 20160213
  11. BLINDED *PLACEBO [Suspect]
     Active Substance: INVESTIGATIONAL PRODUCT
     Dosage: 15 MG, QD (1 TAB OF 15 MG IN EVENING)
     Route: 048
     Dates: start: 20160207, end: 20160209
  12. BLINDED *PLACEBO [Suspect]
     Active Substance: INVESTIGATIONAL PRODUCT
     Dosage: 90 MG, QD (3 TABS OF 30 MG IN MORNING)
     Route: 048
     Dates: start: 20160214, end: 20160216
  13. BLINDED TOLVAPTAN [Suspect]
     Active Substance: TOLVAPTAN
     Dosage: 90 MG, QD (3 TABS OF 30 MG IN MORNING)
     Route: 048
     Dates: start: 20160214, end: 20160216
  14. BLINDED TOLVAPTAN [Suspect]
     Active Substance: TOLVAPTAN
     Dosage: 30 MG, QD (1 TAB OF 30 MG IN EVENING)
     Route: 048
     Dates: start: 20160217, end: 20160405
  15. BLINDED TOLVAPTAN [Suspect]
     Active Substance: TOLVAPTAN
     Dosage: PLACEBO RUN IN (1 TABLET IN MORNING)
     Route: 048
     Dates: start: 20160119, end: 20160202
  16. BLINDED *PLACEBO [Suspect]
     Active Substance: INVESTIGATIONAL PRODUCT
     Dosage: 60 MG, QD (2 TABS OF 30 MG IN MORNING)
     Route: 048
     Dates: start: 20160217, end: 20160405
  17. BLINDED *PLACEBO [Suspect]
     Active Substance: INVESTIGATIONAL PRODUCT
     Dosage: 30 MG, QD (2 TABS OF 15 MG IN MORNING)
     Route: 048
     Dates: start: 20160203, end: 20160206
  18. BLINDED TOLVAPTAN [Suspect]
     Active Substance: TOLVAPTAN
     Dosage: 15 MG, QD (1 TAB OF 15 MG IN EVENING)
     Route: 048
     Dates: start: 20160207, end: 20160209
  19. BLINDED TOLVAPTAN [Suspect]
     Active Substance: TOLVAPTAN
     Dosage: 60 MG, QD (2 TABS OF 30 MG IN MORNING)
     Route: 048
     Dates: start: 20160210, end: 20160213
  20. BLINDED *PLACEBO [Suspect]
     Active Substance: INVESTIGATIONAL PRODUCT
     Dosage: 30 MG, QD (1 TAB OF 30 MG IN EVENING)
     Route: 048
     Dates: start: 20160210, end: 20160213
  21. BLINDED TOLVAPTAN [Suspect]
     Active Substance: TOLVAPTAN
     Dosage: 60 MG, QD (2 TABS OF 30 MG IN MORNING)
     Route: 048
     Dates: start: 20160217, end: 20160405
  22. BLINDED TOLVAPTAN [Suspect]
     Active Substance: TOLVAPTAN
     Dosage: PLACEBO RUN IN (1 TABLET IN EVENING)
     Route: 048
     Dates: start: 20160119, end: 20160202
  23. BLINDED TOLVAPTAN [Suspect]
     Active Substance: TOLVAPTAN
     Dosage: 15 MG, QD (1 TAB OF 15 MG IN EVENING)
     Route: 048
     Dates: start: 20160203, end: 20160206
  24. BLINDED TOLVAPTAN [Suspect]
     Active Substance: TOLVAPTAN
     Dosage: 30 MG, QD (1 TAB OF 30 MG IN EVENING)
     Route: 048
     Dates: start: 20160210, end: 20160213
  25. BLINDED TOLVAPTAN [Suspect]
     Active Substance: TOLVAPTAN
     Dosage: 30 MG, QD (1 TAB OF 30 MG IN EVENING)
     Route: 048
     Dates: start: 20160214, end: 20160216
  26. BLINDED *PLACEBO [Suspect]
     Active Substance: INVESTIGATIONAL PRODUCT
     Dosage: 15 MG, QD (1 TAB OF 15 MG IN EVENING)
     Route: 048
     Dates: start: 20160406, end: 20160729
  27. BLINDED *PLACEBO [Suspect]
     Active Substance: INVESTIGATIONAL PRODUCT
     Dosage: 15 MG, QD (1 TAB OF 15 MG IN EVENING)
     Route: 048
     Dates: start: 20160203, end: 20160206
  28. BLINDED *PLACEBO [Suspect]
     Active Substance: INVESTIGATIONAL PRODUCT
     Dosage: 30 MG, QD (1 TAB OF 30 MG IN EVENING)
     Route: 048
     Dates: start: 20160217, end: 20160405

REACTIONS (1)
  - Transaminases increased [Recovered/Resolved]

NARRATIVE: CASE EVENT DATE: 20160729
